FAERS Safety Report 9228054 (Version 1)
Quarter: 2013Q2

REPORT INFORMATION
  Report Type: Spontaneous
  Country: US (occurrence: US)
  Receive Date: 20130412
  Receipt Date: 20130412
  Transmission Date: 20140414
  Serious: No
  Sender: FDA-Public Use
  Company Number: US-GLAXOSMITHKLINE-A1011261A

PATIENT
  Age: 64 Year
  Sex: Male

DRUGS (1)
  1. JALYN [Suspect]
     Indication: PROSTATE CANCER
     Dosage: 1CAP PER DAY
     Route: 048
     Dates: start: 201211

REACTIONS (2)
  - Therapeutic response decreased [Not Recovered/Not Resolved]
  - Drug administration error [Unknown]
